FAERS Safety Report 23455865 (Version 1)
Quarter: 2024Q1

REPORT INFORMATION
  Report Type: Spontaneous
  Country: US (occurrence: None)
  Receive Date: 20240129
  Receipt Date: 20240129
  Transmission Date: 20240409
  Serious: Yes (Hospitalization, Other)
  Sender: FDA-Public Use
  Company Number: None

PATIENT
  Age: 80 Year
  Sex: Female

DRUGS (13)
  1. AMITRIPTYLINE [Suspect]
     Active Substance: AMITRIPTYLINE
     Dates: start: 20230701, end: 20231029
  2. INSULIN NOS [Concomitant]
     Active Substance: INSULIN NOS
  3. GABAPENTIN [Concomitant]
     Active Substance: GABAPENTIN
  4. LEVOTHYROXINE [Concomitant]
     Active Substance: LEVOTHYROXINE\LEVOTHYROXINE SODIUM
  5. LIOTHYRONINE [Concomitant]
     Active Substance: LIOTHYRONINE
  6. RANOLAZINE [Concomitant]
     Active Substance: RANOLAZINE
  7. METOPROLOL [Concomitant]
     Active Substance: METOPROLOL
  8. OMEPRAZOLE [Concomitant]
     Active Substance: OMEPRAZOLE
  9. PLAVIX [Concomitant]
     Active Substance: CLOPIDOGREL BISULFATE
  10. ASPIRIN [Concomitant]
     Active Substance: ASPIRIN
  11. VITAMIN D [Concomitant]
     Active Substance: VITAMIN D NOS
  12. VITAMIN B12 [Concomitant]
     Active Substance: CYANOCOBALAMIN
  13. VITAMIN A [Concomitant]
     Active Substance: VITAMIN A

REACTIONS (6)
  - Fall [None]
  - Loss of personal independence in daily activities [None]
  - Dysuria [None]
  - Prolapse [None]
  - Asthenia [None]
  - Renal disorder [None]

NARRATIVE: CASE EVENT DATE: 20230701
